FAERS Safety Report 7617102-9 (Version None)
Quarter: 2011Q3

REPORT INFORMATION
  Report Type: 
  Country: None (occurrence: None)
  Receive Date: 20110718
  Receipt Date: 20110603
  Transmission Date: 20111222
  Serious: Yes (Other)
  Sender: FDA-Public Use
  Company Number: US-BAYER-2011-027559

PATIENT
  Age: 49 Year
  Sex: Female
  Weight: 64.853 kg

DRUGS (2)
  1. MIRENA [Suspect]
     Indication: CONTRACEPTION
     Dosage: 20 ?G, CONT
     Route: 015
     Dates: start: 20110322, end: 20110323
  2. MIRENA [Suspect]
     Dosage: 20 ?G, CONT
     Route: 015
     Dates: start: 20110323, end: 20110323

REACTIONS (4)
  - DEVICE EXPULSION [None]
  - DEVICE DIFFICULT TO USE [None]
  - UTERINE PERFORATION [None]
  - PROCEDURAL PAIN [None]
